FAERS Safety Report 24334128 (Version 1)
Quarter: 2024Q3

REPORT INFORMATION
  Report Type: Spontaneous
  Country: ES (occurrence: ES)
  Receive Date: 20240918
  Receipt Date: 20240918
  Transmission Date: 20241017
  Serious: Yes (Hospitalization)
  Sender: ACCORD
  Company Number: ES-MLMSERVICE-20240830-PI177430-00043-1

PATIENT
  Age: 69 Year
  Sex: Male

DRUGS (2)
  1. ALLOPURINOL [Suspect]
     Active Substance: ALLOPURINOL
     Indication: Hyperuricaemia
  2. ALLOPURINOL [Suspect]
     Active Substance: ALLOPURINOL
     Indication: Gout

REACTIONS (3)
  - Pulmonary renal syndrome [Unknown]
  - Glomerulonephritis [Unknown]
  - Anti-neutrophil cytoplasmic antibody positive vasculitis [Unknown]
